FAERS Safety Report 22610354 (Version 1)
Quarter: 2023Q2

REPORT INFORMATION
  Report Type: Spontaneous
  Country: FR (occurrence: FR)
  Receive Date: 20230616
  Receipt Date: 20230616
  Transmission Date: 20230722
  Serious: Yes (Other)
  Sender: FDA-Public Use
  Company Number: None

PATIENT
  Age: 79 Year
  Sex: Male

DRUGS (3)
  1. CIPROFLOXACIN [Suspect]
     Active Substance: CIPROFLOXACIN
     Dosage: 1000 MG, QD
     Route: 048
     Dates: start: 20221026, end: 20221102
  2. TAZOBACTAM [Suspect]
     Active Substance: TAZOBACTAM
     Indication: Osteitis
     Dosage: CF COMMENTAIRE
     Route: 042
     Dates: start: 20221026, end: 20221102
  3. PIPERACILLIN [Suspect]
     Active Substance: PIPERACILLIN
     Indication: Osteitis
     Dosage: CF COMMENTAIRE
     Route: 042
     Dates: start: 20221026, end: 20221102

REACTIONS (3)
  - Thrombocytopenia [Recovered/Resolved]
  - Neutropenia [Recovered/Resolved]
  - Condition aggravated [Recovered/Resolved]

NARRATIVE: CASE EVENT DATE: 20221102
